FAERS Safety Report 17478491 (Version 1)
Quarter: 2020Q1

REPORT INFORMATION
  Report Type: Report from Study
  Country: CA (occurrence: CA)
  Receive Date: 20200228
  Receipt Date: 20200228
  Transmission Date: 20200409
  Serious: Yes (Other)
  Sender: FDA-Public Use
  Company Number: CA-JNJFOC-20191226882

PATIENT
  Age: 52 Year
  Sex: Male
  Weight: 137 kg

DRUGS (1)
  1. STELARA [Suspect]
     Active Substance: USTEKINUMAB
     Indication: CROHN^S DISEASE
     Route: 058
     Dates: start: 20190110

REACTIONS (4)
  - Loss of consciousness [Recovered/Resolved]
  - Urinary incontinence [Unknown]
  - Anal incontinence [Unknown]
  - Fall [Unknown]

NARRATIVE: CASE EVENT DATE: 20191208
